FAERS Safety Report 16886822 (Version 2)
Quarter: 2019Q4

REPORT INFORMATION
  Report Type: Report from Study
  Country: US (occurrence: US)
  Receive Date: 20191004
  Receipt Date: 20191015
  Transmission Date: 20200122
  Serious: Yes (Death, Hospitalization)
  Sender: FDA-Public Use
  Company Number: US-EXELIXIS-CABO-19023466

PATIENT
  Age: 82 Year
  Sex: Female

DRUGS (3)
  1. CABOMETYX [Suspect]
     Active Substance: CABOZANTINIB S-MALATE
     Indication: BLADDER CANCER
     Dosage: 40 MG, QD, AT 4 PM WITHOUT FOOD
     Dates: start: 20190809, end: 201908
  2. CABOMETYX [Suspect]
     Active Substance: CABOZANTINIB S-MALATE
     Dosage: 80 MG, QD (2XTABLETS OF 40 MG)
     Dates: start: 201908, end: 201908
  3. CABOMETYX [Suspect]
     Active Substance: CABOZANTINIB S-MALATE
     Dosage: 40 MG, QD
     Dates: start: 201908, end: 20190907

REACTIONS (12)
  - Fatigue [Unknown]
  - Constipation [Unknown]
  - Cystitis [Unknown]
  - Vomiting [Recovered/Resolved]
  - Off label use [Unknown]
  - Red blood cell count decreased [Unknown]
  - Incorrect dose administered [Unknown]
  - Death [Fatal]
  - Platelet count decreased [Unknown]
  - Dyspnoea [Unknown]
  - Somnolence [Unknown]
  - Chest pain [Unknown]

NARRATIVE: CASE EVENT DATE: 201908
